FAERS Safety Report 9355261 (Version 1)
Quarter: 2013Q2

REPORT INFORMATION
  Report Type: Spontaneous
  Country: US (occurrence: US)
  Receive Date: 20130619
  Receipt Date: 20130619
  Transmission Date: 20140414
  Serious: Yes (Hospitalization)
  Sender: FDA-Public Use
  Company Number: US-BAYER-2013-073362

PATIENT
  Age: 37 Year
  Sex: Female

DRUGS (6)
  1. YASMIN [Suspect]
  2. ABILIFY [Concomitant]
  3. FLEXERIL [Concomitant]
  4. TRAZODONE [Concomitant]
  5. DILAUDID [Concomitant]
  6. OXYCODONE [Concomitant]

REACTIONS (1)
  - Pulmonary embolism [None]
